FAERS Safety Report 18435785 (Version 4)
Quarter: 2020Q4

REPORT INFORMATION
  Report Type: Report from Study
  Country: US (occurrence: US)
  Receive Date: 20201028
  Receipt Date: 20201124
  Transmission Date: 20210114
  Serious: Yes (Other)
  Sender: FDA-Public Use
  Company Number: US-GLAXOSMITHKLINE-US2020AMR199695

PATIENT
  Sex: Female

DRUGS (4)
  1. NIRAPARIB [Suspect]
     Active Substance: NIRAPARIB
     Indication: OVARIAN CANCER
     Dosage: 200 MG, QD
     Dates: start: 20200930, end: 20201002
  2. NIRAPARIB [Suspect]
     Active Substance: NIRAPARIB
     Dosage: 200 MG, QD
     Dates: start: 20201031, end: 20201119
  3. NIRAPARIB [Suspect]
     Active Substance: NIRAPARIB
     Dosage: 200 MG, QD
     Dates: start: 20201005, end: 20201020
  4. NEULASTA [Suspect]
     Active Substance: PEGFILGRASTIM
     Indication: PRODUCT USED FOR UNKNOWN INDICATION
     Dosage: UNK

REACTIONS (10)
  - Haemoglobin decreased [Unknown]
  - Disease progression [Unknown]
  - Insomnia [Unknown]
  - Neoplasm [Unknown]
  - Psoriasis [Unknown]
  - Constipation [Unknown]
  - Nausea [Recovering/Resolving]
  - Pruritus [Unknown]
  - Neuropathy peripheral [Not Recovered/Not Resolved]
  - Platelet count decreased [Recovering/Resolving]
